FAERS Safety Report 9149247 (Version 2)
Quarter: 2013Q2

REPORT INFORMATION
  Report Type: Spontaneous
  Country: US (occurrence: US)
  Receive Date: 20130308
  Receipt Date: 20130430
  Transmission Date: 20140414
  Serious: Yes (Other)
  Sender: FDA-Public Use
  Company Number: US-PFIZER INC-2013078649

PATIENT
  Age: 81 Year
  Sex: Female
  Weight: 63.3 kg

DRUGS (32)
  1. DOXORUBICIN HCL [Suspect]
     Indication: BREAST CANCER FEMALE
     Dosage: 102 MG/M2, (AT 60 MG/M2, ONCE PUSH OVER 10 MINUTES)
     Route: 042
     Dates: start: 20130121
  2. DOXORUBICIN HCL [Suspect]
     Indication: BREAST CANCER FEMALE
     Dosage: 102 MG/M2, (AT 60 MG/M2, ONCE PUSH OVER 10 MINUTES), CYCLE -2, DAY - 1
     Route: 042
     Dates: start: 20130204
  3. DOXORUBICIN HCL [Suspect]
     Dosage: 102 MG/M2, (AT 60 MG/M2, ONCE PUSH OVER 10 MINUTES), CYCLE- 3, DAY- 1
     Route: 042
     Dates: start: 20130218
  4. ONDANSETRON HCL [Concomitant]
     Dosage: 16 MG, 1X/DAY (ONCE) CYCLE-1, DAY-1
     Route: 048
     Dates: start: 20130121
  5. ONDANSETRON HCL [Concomitant]
     Dosage: 16 MG, 16 MG, (ONCE SHORT OVER 15 MINUTES IN NS 50 ML (2) AT THE RATE OF 200 ML/HR), CYCLE -2, DAY1
     Dates: start: 20130204
  6. ONDANSETRON HCL [Concomitant]
     Dosage: 16 MG, 16 MG, (ONCE SHORT OVER 15 MINUTES IN NS 50 ML AT THE RATE OF 200 ML/HR), CYCLE - 3, DAY1
     Route: 042
     Dates: start: 20130218
  7. ACETAMINOPHEN [Concomitant]
     Dosage: 650 MG, 1X/DAY (ONCE) CYCLE-1, DAY-1
     Route: 048
     Dates: start: 20130121
  8. ACETAMINOPHEN [Concomitant]
     Dosage: 650 MG, 1X/DAY (ONCE) CYCLE -2, DAY - 1
     Route: 048
     Dates: start: 20130204
  9. ACETAMINOPHEN [Concomitant]
     Dosage: 650 MG, 1X/DAY (ONCE), CYCLE- 3, DAY - 1
     Route: 048
     Dates: start: 20130218
  10. DEXAMETHASONE SODIUM PHOSPHATE [Concomitant]
     Dosage: 10 MG, (ONCE PUSH OVER 20 MINUTES), CYCLE-1, DAY-1
     Route: 042
     Dates: start: 20130121
  11. DEXAMETHASONE SODIUM PHOSPHATE [Concomitant]
     Dosage: 10 MG, (ONCE PUSH OVER 20 MINUTES), CYCLE -2, DAY - 1
     Route: 042
     Dates: start: 20130204
  12. DEXAMETHASONE SODIUM PHOSPHATE [Concomitant]
     Dosage: 10 MG, (ONCE PUSH OVER 20 MINUTES), CYCLE-3, DAY- 1
     Route: 042
     Dates: start: 20130218
  13. ATIVAN [Concomitant]
     Dosage: 0.1 MG, 1X/DAY (ONCE), CYCLE- 1, DAY-1
     Route: 048
     Dates: start: 20130321
  14. ATIVAN [Concomitant]
     Dosage: 0.5 MG, 1X/DAY
     Route: 048
     Dates: start: 20130204
  15. ATIVAN [Concomitant]
     Dosage: 0.5 MG, 1X/DAY,
     Route: 048
     Dates: start: 20130218
  16. DIPHENHYDRAMINE HCL [Concomitant]
     Dosage: 50 MG, (ONCE PUSH OVER 10 MINUTES), CYCLE - 1, DAY-I
     Route: 042
     Dates: start: 20130121
  17. DIPHENHYDRAMINE HCL [Concomitant]
     Dosage: 50 MG, (ONCE PUSH OVER 10 MINUTES), CYCLE -2, DAY -1
     Route: 042
     Dates: start: 20130204
  18. DIPHENHYDRAMINE HCL [Concomitant]
     Dosage: 50 MG, (ONCE PUSH OVER 10 MINUTES), CYCLE- 3, DAY- 1
     Route: 042
     Dates: start: 20130218
  19. FAMOTIDINE [Concomitant]
     Dosage: 20 MG/ML, (OF 10 MG/ML) LNTRAVENOUS ONCE PUSH OVER 2 MINUTES), CYCLE - 1, DAY- 1
     Route: 042
     Dates: start: 20130121
  20. FAMOTIDINE [Concomitant]
     Dosage: 20 MG/ML, (OF 10 MG/ML) LNTRAVENOUS ONCE PUSH OVER 2 MINUTES), CYCLE-2, DAY- 1
     Route: 042
     Dates: start: 20130204
  21. FAMOTIDINE [Concomitant]
     Dosage: 20 MG/ML, (OF 10 MG/ML) LNTRAVENOUS ONCE PUSH OVER 2 MINUTES), CYCLE- 3, DAY- 1
     Route: 042
     Dates: start: 20130218
  22. CYTOXAN [Concomitant]
     Dosage: 1020MG/M2,(AT 600 MG/M2) ONCE SHORT OVER 30 MINUTES IN NS 250 ML, AT THE RATE OF 500ML/HR,CYCLE1DAY1
     Route: 042
     Dates: start: 20130121
  23. CYTOXAN [Concomitant]
     Dosage: 1020MG/M2,(AT 600 MG/M2) ONCE SHORT OVER 30 MINUTES IN NS 250 ML, AT THE RATE OF 500ML/HR,CYCLE2DAY1
     Route: 042
     Dates: start: 20130204
  24. CYTOXAN [Concomitant]
     Dosage: 1020MG/M2,(AT 600 MG/M2)ONCE SHORT OVER 30 MINUTES IN NS 250 ML, AT THE RATE OF 500ML/HR,CYCLE3DAY1
     Route: 042
     Dates: start: 20130218
  25. NEULASTA [Concomitant]
     Indication: NEUTROPENIA
     Dosage: 6 MG/ML, (OF 6MG/0.6ML) ONCE, CYCE-1, DAY-2
     Route: 058
     Dates: start: 20130122
  26. NEULASTA [Concomitant]
     Dosage: 6 MG/ML, (OF 6MG/0.6ML) ONCE, CYCLE -2, DAY -2
     Route: 058
     Dates: start: 20130205
  27. NEULASTA [Concomitant]
     Dosage: 6 MG/ML, (OF 6MG/0.6ML) ONCE, CYCLE -3, DAY -2
     Route: 058
     Dates: start: 20130219
  28. HYDROCHLOROTHIAZIDE [Concomitant]
     Dosage: 12 MG, 1X/DAY (DAILY)
     Route: 048
  29. FISH OIL [Concomitant]
     Dosage: 4000 MG, 1X/DAY (DAILY)
     Route: 048
  30. CALCIUM PLUS D [Concomitant]
     Dosage: UNK, 1X/DAY (DAILY)
     Route: 048
  31. ASPIRIN [Concomitant]
     Dosage: 162.5 MG, 1X/DAY (1/2 OF 325 MG DAILY)
     Route: 048
  32. ALPHA E [Concomitant]
     Dosage: 4000 IU, 1X/DAY (DAILY)
     Route: 048

REACTIONS (27)
  - Pulmonary oedema [Unknown]
  - Local swelling [Unknown]
  - Erythema [Unknown]
  - Pain in extremity [Unknown]
  - Skin exfoliation [Unknown]
  - Contusion [Unknown]
  - Skin discolouration [Unknown]
  - Pain [Recovered/Resolved]
  - Swelling [Unknown]
  - Pyrexia [Unknown]
  - Hyperhidrosis [Unknown]
  - Oedema peripheral [Unknown]
  - Vertigo [Unknown]
  - Syncope [Unknown]
  - Weight decreased [Unknown]
  - Conjunctival pallor [Unknown]
  - Cardiac murmur functional [Unknown]
  - Erythema [Unknown]
  - Skin exfoliation [Unknown]
  - Upper respiratory tract infection [Unknown]
  - White blood cell count decreased [Unknown]
  - Platelet count decreased [Unknown]
  - Nocturia [Unknown]
  - Blood glucose increased [Unknown]
  - Reticulocyte count increased [Unknown]
  - Haptoglobin increased [Unknown]
  - Anaemia [Unknown]
